FAERS Safety Report 9522612 (Version 5)
Quarter: 2013Q4

REPORT INFORMATION
  Report Type: Report from Study
  Country: US (occurrence: US)
  Receive Date: 20130913
  Receipt Date: 20131031
  Transmission Date: 20140711
  Serious: Yes (Hospitalization)
  Sender: FDA-Public Use
  Company Number: US-JNJFOC-20130902876

PATIENT
  Age: 20 Year
  Sex: Female
  Weight: 55.2 kg

DRUGS (2)
  1. REMICADE [Suspect]
     Indication: CROHN^S DISEASE
     Route: 042
     Dates: start: 20060522
  2. 5-ASA [Concomitant]
     Route: 065

REACTIONS (1)
  - Lymphoedema [Recovered/Resolved]
